FAERS Safety Report 21410710 (Version 1)
Quarter: 2022Q4

REPORT INFORMATION
  Report Type: Spontaneous
  Country: US (occurrence: None)
  Receive Date: 20221004
  Receipt Date: 20221004
  Transmission Date: 20230112
  Serious: No
  Sender: FDA-Public Use
  Company Number: None

PATIENT
  Age: 56 Year
  Sex: Male
  Weight: 124.74 kg

DRUGS (1)
  1. EMPAGLIFLOZIN [Suspect]
     Active Substance: EMPAGLIFLOZIN
     Dosage: 37.5 MG AM PO
     Route: 048
     Dates: start: 20220801, end: 20220829

REACTIONS (1)
  - Dry mouth [None]

NARRATIVE: CASE EVENT DATE: 20220829
